FAERS Safety Report 20780956 (Version 1)
Quarter: 2022Q2

REPORT INFORMATION
  Report Type: Report from Study
  Country: CO (occurrence: CO)
  Receive Date: 20220504
  Receipt Date: 20220504
  Transmission Date: 20220721
  Serious: Yes (Other)
  Sender: FDA-Public Use
  Company Number: CO-UCBSA-2022024322

PATIENT
  Age: 61 Year
  Sex: Female

DRUGS (2)
  1. CERTOLIZUMAB PEGOL [Suspect]
     Active Substance: CERTOLIZUMAB PEGOL
     Indication: Rheumatoid arthritis
     Dosage: 400 MILLIGRAM, EV 30 DAYS
     Dates: start: 20211216, end: 20220419
  2. CEFADROXIL [Concomitant]
     Active Substance: CEFADROXIL
     Indication: Infection
     Dosage: 500 MILLIGRAM, 2X/DAY (BID)

REACTIONS (1)
  - Medical device removal [Recovering/Resolving]

NARRATIVE: CASE EVENT DATE: 20220419
